FAERS Safety Report 5605715-5 (Version None)
Quarter: 2008Q1

REPORT INFORMATION
  Report Type: 
  Country: None (occurrence: None)
  Receive Date: 20080129
  Receipt Date: 20080123
  Transmission Date: 20080703
  Serious: Yes (Other)
  Sender: FDA-Public Use
  Company Number: US-BAYER-200811982NA

PATIENT
  Sex: Female

DRUGS (16)
  1. MAGNEVIST [Suspect]
     Indication: NUCLEAR MAGNETIC RESONANCE IMAGING
     Dates: start: 19961030, end: 19961030
  2. MAGNEVIST [Suspect]
     Dates: start: 19970430, end: 19970430
  3. MAGNEVIST [Suspect]
     Dates: start: 19971117, end: 19971117
  4. MAGNEVIST [Suspect]
     Dates: start: 19981231, end: 19981231
  5. MAGNEVIST [Suspect]
     Dates: start: 19991109, end: 19991109
  6. MAGNEVIST [Suspect]
     Dates: start: 20001108, end: 20001108
  7. MAGNEVIST [Suspect]
     Dates: start: 20050130, end: 20050130
  8. MAGNEVIST [Suspect]
     Dates: start: 20050320, end: 20050320
  9. OMNISCAN [Suspect]
     Indication: NUCLEAR MAGNETIC RESONANCE IMAGING
     Dates: start: 19961030, end: 19961030
  10. OMNISCAN [Suspect]
     Dates: start: 19970430, end: 19970430
  11. OMNISCAN [Suspect]
     Dates: start: 19971117, end: 19971117
  12. OMNISCAN [Suspect]
     Dates: start: 19981231, end: 19981231
  13. OMNISCAN [Suspect]
     Dates: start: 19991109, end: 19991109
  14. OMNISCAN [Suspect]
     Dates: start: 20001108, end: 20001108
  15. OMNISCAN [Suspect]
     Dates: start: 20050130, end: 20050130
  16. OMNISCAN [Suspect]
     Dates: start: 20050320, end: 20050320

REACTIONS (6)
  - GENERAL PHYSICAL HEALTH DETERIORATION [None]
  - INJURY [None]
  - JOINT CONTRACTURE [None]
  - NEPHROGENIC SYSTEMIC FIBROSIS [None]
  - PAIN [None]
  - SCAR [None]
